FAERS Safety Report 9808076 (Version 1)
Quarter: 2014Q1

REPORT INFORMATION
  Report Type: Spontaneous
  Country: US (occurrence: US)
  Receive Date: 20140110
  Receipt Date: 20140110
  Transmission Date: 20141002
  Serious: Yes (Other)
  Sender: FDA-Public Use
  Company Number: US-JNJFOC-20140102321

PATIENT
  Sex: Male
  Weight: 63.5 kg

DRUGS (2)
  1. CONCERTA [Suspect]
     Indication: ATTENTION DEFICIT/HYPERACTIVITY DISORDER
     Route: 048
     Dates: start: 2008, end: 20131012
  2. PROZAC [Suspect]
     Indication: ANXIETY
     Route: 048
     Dates: start: 2004, end: 20131012

REACTIONS (7)
  - Suicidal ideation [Recovered/Resolved]
  - Suicide attempt [Recovered/Resolved]
  - Eye disorder [Recovering/Resolving]
  - Malaise [Recovering/Resolving]
  - Mental disorder [Recovering/Resolving]
  - Pallor [Recovering/Resolving]
  - Self-medication [Unknown]
